FAERS Safety Report 15840950 (Version 1)
Quarter: 2019Q1

REPORT INFORMATION
  Report Type: Spontaneous
  Country: JP (occurrence: JP)
  Receive Date: 20190118
  Receipt Date: 20190118
  Transmission Date: 20190417
  Serious: Yes (Other)
  Sender: FDA-Public Use
  Company Number: JP-PFIZER INC-2019016364

PATIENT
  Age: 12 Year

DRUGS (1)
  1. METHOTREXATE. [Suspect]
     Active Substance: METHOTREXATE
     Indication: OSTEOSARCOMA
     Dosage: UNK (HIGH DOSE THERAPY)

REACTIONS (3)
  - Ascites [Unknown]
  - Pleural effusion [Unknown]
  - Drug clearance decreased [Unknown]
